FAERS Safety Report 20327432 (Version 6)
Quarter: 2025Q4

REPORT INFORMATION
  Report Type: Report from Study
  Country: US (occurrence: US)
  Receive Date: 20220112
  Receipt Date: 20251126
  Transmission Date: 20260117
  Serious: Yes (Hospitalization, Other)
  Sender: TAKEDA
  Company Number: US-TAKEDA-2022TUS001179

PATIENT
  Age: 74 Year
  Sex: Female

DRUGS (3)
  1. VEDOLIZUMAB [Suspect]
     Active Substance: VEDOLIZUMAB
     Indication: Crohn^s disease
     Dosage: 300 MILLIGRAM
  2. VEDOLIZUMAB [Suspect]
     Active Substance: VEDOLIZUMAB
     Dosage: 300 MILLIGRAM, Q6WEEKS
  3. VEDOLIZUMAB [Suspect]
     Active Substance: VEDOLIZUMAB
     Dosage: 300 MILLIGRAM, Q4WEEKS

REACTIONS (18)
  - Pancreatitis [Unknown]
  - Atrial fibrillation [Unknown]
  - COVID-19 [Unknown]
  - COVID-19 pneumonia [Unknown]
  - Barrett^s oesophagus [Unknown]
  - Suture rupture [Unknown]
  - Pain [Unknown]
  - Staphylococcal infection [Unknown]
  - Off label use [Unknown]
  - Bowel movement irregularity [Unknown]
  - Postoperative wound infection [Recovered/Resolved]
  - Large intestine polyp [Unknown]
  - Food intolerance [Unknown]
  - Oesophageal mass [Unknown]
  - Stomach mass [Unknown]
  - Ectopic gastric mucosa [Unknown]
  - Gastric mucosa erythema [Unknown]
  - Arthralgia [Unknown]
